FAERS Safety Report 19637914 (Version 5)
Quarter: 2022Q3

REPORT INFORMATION
  Report Type: Spontaneous
  Country: US (occurrence: US)
  Receive Date: 20210730
  Receipt Date: 20220815
  Transmission Date: 20221026
  Serious: Yes (Hospitalization)
  Sender: FDA-Public Use
  Company Number: US-PFIZER INC-2021828981

PATIENT
  Age: 55 Year
  Sex: Female
  Weight: 57.15 kg

DRUGS (15)
  1. IBRANCE [Suspect]
     Active Substance: PALBOCICLIB
     Indication: Breast cancer female
     Dosage: 125 MG, CYCLIC DAILY FOR 21 DAYS
     Route: 048
     Dates: start: 20210612
  2. IBRANCE [Suspect]
     Active Substance: PALBOCICLIB
     Dosage: 100 MG, (DAILY X 21DAYS 7 DAYS OFF)
     Route: 048
     Dates: start: 20210612, end: 20210908
  3. IBRANCE [Suspect]
     Active Substance: PALBOCICLIB
     Dosage: 100 MG, (DAILY X 21DAYS 7 DAYS OFF)
     Route: 048
     Dates: start: 20210921
  4. ZOMETA [Suspect]
     Active Substance: ZOLEDRONIC ACID
     Dosage: UNK
  5. IBUPROFEN [Concomitant]
     Active Substance: IBUPROFEN
     Dosage: UNK
  6. CALCIUM CARBONATE [Concomitant]
     Active Substance: CALCIUM CARBONATE
     Dosage: UNK
  7. COQ10 [ASCORBIC ACID;BETACAROTENE;CUPRIC OXIDE;MANGANESE SULFATE;SELEN [Concomitant]
     Dosage: UNK
  8. TUMS [Concomitant]
     Active Substance: CALCIUM CARBONATE
     Dosage: UNK
  9. TYLENOL [Concomitant]
     Active Substance: ACETAMINOPHEN
     Dosage: UNK
  10. VITAMIN B COMPLEX [Concomitant]
     Active Substance: CYANOCOBALAMIN\DEXPANTHENOL\NIACINAMIDE\PYRIDOXINE HYDROCHLORIDE\RIBOFLAVIN 5^-PHOSPHATE SODIUM\THIA
     Dosage: UNK
  11. VITAMIN D3 [Concomitant]
     Active Substance: CHOLECALCIFEROL
     Dosage: UNK
  12. LEVOFLOXACIN [Concomitant]
     Active Substance: LEVOFLOXACIN
     Dosage: UNK
  13. ONDANSETRON HCL [Concomitant]
     Active Substance: ONDANSETRON HYDROCHLORIDE
     Dosage: UNK
  14. ANASTROZOLE [Concomitant]
     Active Substance: ANASTROZOLE
     Dosage: UNK
  15. PROCHLORPERAZINE MALEATE [Concomitant]
     Active Substance: PROCHLORPERAZINE MALEATE
     Dosage: UNK

REACTIONS (34)
  - Pyrexia [Recovering/Resolving]
  - Full blood count abnormal [Unknown]
  - Abdominal discomfort [Unknown]
  - Dyspepsia [Unknown]
  - Flatulence [Unknown]
  - Weight increased [Unknown]
  - Fluid retention [Unknown]
  - Insomnia [Unknown]
  - Headache [Unknown]
  - Visual impairment [Unknown]
  - Fatigue [Unknown]
  - White blood cell count decreased [Unknown]
  - Platelet count decreased [Unknown]
  - Neutrophil count decreased [Unknown]
  - Diarrhoea [Unknown]
  - Nausea [Unknown]
  - Pain [Unknown]
  - Chest discomfort [Recovering/Resolving]
  - Hepatic pain [Recovered/Resolved]
  - Chest pain [Recovered/Resolved]
  - Infection [Unknown]
  - Movement disorder [Unknown]
  - Alopecia [Unknown]
  - Tongue discomfort [Unknown]
  - Erythema [Unknown]
  - Malaise [Unknown]
  - Feeling hot [Unknown]
  - Nasopharyngitis [Unknown]
  - Nasal congestion [Unknown]
  - Hepatic enzyme increased [Unknown]
  - Aspartate aminotransferase increased [Unknown]
  - Pruritus [Unknown]
  - Dry skin [Unknown]
  - Apathy [Unknown]

NARRATIVE: CASE EVENT DATE: 20210101
